FAERS Safety Report 11953974 (Version 5)
Quarter: 2016Q2

REPORT INFORMATION
  Report Type: Spontaneous
  Country: US (occurrence: US)
  Receive Date: 20160126
  Receipt Date: 20160628
  Transmission Date: 20160815
  Serious: Yes (Hospitalization, Other)
  Sender: FDA-Public Use
  Company Number: US-ELI_LILLY_AND_COMPANY-US201601006437

PATIENT
  Age: 25 Year
  Sex: Female

DRUGS (2)
  1. ADCIRCA [Suspect]
     Active Substance: TADALAFIL
     Indication: PULMONARY HYPERTENSION
     Dosage: 40 MG (2X20 MG TABLETS) QD
     Route: 048
     Dates: start: 2015
  2. EPO                                /00909301/ [Concomitant]
     Active Substance: ERYTHROPOIETIN
     Indication: PRODUCT USED FOR UNKNOWN INDICATION
     Dosage: 52 DF, UNKNOWN
     Route: 065

REACTIONS (6)
  - Device related infection [Unknown]
  - Hypotension [Recovering/Resolving]
  - Abdominal distension [Recovering/Resolving]
  - Tricuspid valve incompetence [Recovering/Resolving]
  - Fluid retention [Recovering/Resolving]
  - Pulmonary hypertension [Recovering/Resolving]

NARRATIVE: CASE EVENT DATE: 201512
